FAERS Safety Report 6102226-8 (Version None)
Quarter: 2009Q1

REPORT INFORMATION
  Report Type: 
  Country: None (occurrence: None)
  Receive Date: 20090304
  Receipt Date: 20090223
  Transmission Date: 20090719
  Serious: Yes (Other)
  Sender: FDA-Public Use
  Company Number: US-ELI_LILLY_AND_COMPANY-US200902006051

PATIENT
  Sex: Female

DRUGS (2)
  1. CYMBALTA [Suspect]
     Indication: DIABETIC NEUROPATHY
  2. GABAPENTIN [Concomitant]

REACTIONS (2)
  - PUPILLARY DISORDER [None]
  - RETINAL DETACHMENT [None]
